FAERS Safety Report 12565185 (Version 4)
Quarter: 2016Q4

REPORT INFORMATION
  Report Type: Spontaneous
  Country: US (occurrence: US)
  Receive Date: 20160718
  Receipt Date: 20161007
  Transmission Date: 20170207
  Serious: Yes (Other)
  Sender: FDA-Public Use
  Company Number: US-PFIZER INC-2016180788

PATIENT
  Age: 62 Year
  Sex: Male
  Weight: 105 kg

DRUGS (35)
  1. HEP-LOCK /00027701/ [Concomitant]
     Dosage: UNK UNK, AS NEEDED (TO FLUSH 5 ML, THE CATHETER EVERY 12HOURS)
     Route: 042
  2. LIDODERM [Concomitant]
     Active Substance: LIDOCAINE
     Dosage: 5 %, DAILY (APPLY 1 PATCH)
     Route: 061
  3. CALCIFEROL /00107901/ [Concomitant]
     Dosage: 1 DOSE, DAILY (8,000 UNIT/ML)
     Route: 048
  4. NORCO [Concomitant]
     Active Substance: ACETAMINOPHEN\HYDROCODONE BITARTRATE
     Indication: PAIN
     Dosage: UNK, AS NEEDED (HYDROCODONE: 5MG-ACETAMINOPHEN: 325 MG)
     Route: 048
  5. BENEMID [Concomitant]
     Active Substance: PROBENECID
     Dosage: 500 MG, 2X/DAY
     Route: 048
  6. VFEND [Suspect]
     Active Substance: VORICONAZOLE
     Indication: OSTEOMYELITIS FUNGAL
     Dosage: 200 MG, 2X/DAY
     Route: 048
     Dates: start: 201512, end: 20160608
  7. HEPARIN [Concomitant]
     Active Substance: HEPARIN SODIUM
     Dosage: 0.5 ML, 2X/DAY (EVERY 12 HOURS)
     Route: 058
  8. ULTRAM [Concomitant]
     Active Substance: TRAMADOL HYDROCHLORIDE
     Indication: PAIN
     Dosage: 50 MG, AS NEEDED (TAKE 1 TABLET EVERY 6 HOURS )
     Route: 048
  9. GLUCOPHAGE [Concomitant]
     Active Substance: METFORMIN HYDROCHLORIDE
     Dosage: 1000 MG, 2X/DAY (WITH BREAKFAST AND DINNER)
     Route: 048
  10. LISINOPRIL. [Concomitant]
     Active Substance: LISINOPRIL
     Dosage: UNK
  11. VFEND [Suspect]
     Active Substance: VORICONAZOLE
     Indication: STEVENS-JOHNSON SYNDROME
  12. TYLENOL [Concomitant]
     Active Substance: ACETAMINOPHEN
     Indication: PAIN
     Dosage: 325 MG, AS NEEDED (TAKE 2 TABLETS, EVERY 6 HOURS)
     Route: 048
  13. LACTINEX /00079701/ [Concomitant]
     Dosage: 1 DOSE, 4X/DAY (1 MILLION CELL, CHEW BEFORE SWALLOWING)
     Route: 048
  14. LASIX [Concomitant]
     Active Substance: FUROSEMIDE
     Dosage: 20 MG, 2X/DAY
     Route: 048
  15. VFEND [Suspect]
     Active Substance: VORICONAZOLE
     Indication: CANDIDA INFECTION
     Dosage: 200 MG, 2X/DAY
     Route: 048
     Dates: start: 20160103, end: 20160608
  16. ALBUTEROL HFA [Concomitant]
     Active Substance: ALBUTEROL SULFATE
     Indication: WHEEZING
  17. VITAMIN B12 [Concomitant]
     Active Substance: CYANOCOBALAMIN
     Dosage: 1000 UG, DAILY
     Route: 048
  18. ALBUTEROL HFA [Concomitant]
     Active Substance: ALBUTEROL SULFATE
     Indication: DYSPNOEA
     Dosage: 2 DOSE, AS NEEDED (90 MCG/ACTUATION, EVERY 4 HOURS)
     Route: 048
  19. PEPCID [Concomitant]
     Active Substance: FAMOTIDINE
     Dosage: 20 MG, 2X/DAY (TAKE 1 TABLET EVERY 12 HOURS)
     Route: 048
  20. NOVOLOG [Concomitant]
     Active Substance: INSULIN ASPART
     Dosage: 4 UNIT, 3X/DAY (WITH MEALS)
     Route: 058
  21. FLOMAX [Concomitant]
     Active Substance: TAMSULOSIN HYDROCHLORIDE
     Dosage: 0.8 MG, 1X/DAY (TAKE 2 CAPSULES, EVERY EVENING AFTER DINNER. SWALLOW WHOLE)
     Route: 048
  22. VITAMIN B1 [Concomitant]
     Active Substance: THIAMINE HYDROCHLORIDE
     Dosage: 100 MG, DAILY
     Route: 048
  23. TENORMIN [Concomitant]
     Active Substance: ATENOLOL
     Dosage: 50 MG, DAILY
     Route: 048
  24. MEVACOR [Concomitant]
     Active Substance: LOVASTATIN
     Dosage: 20 MG, DAILY (AVOID GRAPE JUICE)
     Route: 048
  25. ALLOPURINOL. [Concomitant]
     Active Substance: ALLOPURINOL
     Indication: GOUT
     Dosage: 100 MG, 1X/DAY
  26. VFEND [Suspect]
     Active Substance: VORICONAZOLE
     Indication: CANDIDA INFECTION
  27. ZYLOPRIM [Concomitant]
     Active Substance: ALLOPURINOL
     Dosage: 100 MG, DAILY
     Route: 048
  28. INSULIN GLARGINE [Concomitant]
     Active Substance: INSULIN GLARGINE
     Dosage: 4 UNIT, 1X/DAY (EVERY EVENING)
     Route: 058
  29. CALCIUM CARBONATE. [Concomitant]
     Active Substance: CALCIUM CARBONATE
     Dosage: 200 MG, 2X/DAY (BREAKFAST AND DINNER) BEST IF TAKEN WITH FOOD)
     Route: 048
  30. VFEND [Suspect]
     Active Substance: VORICONAZOLE
     Indication: WOUND INFECTION
  31. TYLENOL [Concomitant]
     Active Substance: ACETAMINOPHEN
     Indication: PYREXIA
  32. WELLBUTRIN [Concomitant]
     Active Substance: BUPROPION HYDROCHLORIDE
     Dosage: 0.5 MG, 2X/DAY
     Route: 048
  33. PLAVIX [Concomitant]
     Active Substance: CLOPIDOGREL BISULFATE
     Dosage: 75 MG, 1X/DAY (NIGHTLY)
     Route: 048
  34. FLEXERIL [Concomitant]
     Active Substance: CYCLOBENZAPRINE HYDROCHLORIDE
     Indication: MUSCLE SPASMS
     Dosage: 5 MG, AS NEEDED (TAKE 1 TABLET EVERY 8 HOURS  )
     Route: 048
  35. SEROQUEL [Concomitant]
     Active Substance: QUETIAPINE FUMARATE
     Indication: AGITATION
     Dosage: 50 MG, AS NEEDED (TAKE 1 TABLET EVERY 12 HOURS)
     Route: 048

REACTIONS (9)
  - Hypersensitivity [Unknown]
  - Dermatitis bullous [Recovering/Resolving]
  - Photosensitivity reaction [Unknown]
  - Blood blister [Unknown]
  - Porphyria non-acute [Unknown]
  - Macule [Not Recovered/Not Resolved]
  - Rash [Unknown]
  - Blister [Recovered/Resolved]
  - Skin lesion [Unknown]

NARRATIVE: CASE EVENT DATE: 2016
